FAERS Safety Report 5386585-X (Version None)
Quarter: 2007Q3

REPORT INFORMATION
  Report Type: 
  Country: None (occurrence: None)
  Receive Date: 20070713
  Receipt Date: 20070705
  Transmission Date: 20080115
  Serious: Yes (Life-Threatening, Hospitalization)
  Sender: FDA-Public Use
  Company Number: B0478684A

PATIENT
  Age: 30 Year
  Sex: Female

DRUGS (3)
  1. WELLBUTRIN SR [Suspect]
     Indication: DEPRESSION
     Dosage: 150MG TWICE PER DAY
     Route: 048
     Dates: start: 20070317, end: 20070610
  2. CYMBALTA [Suspect]
     Indication: BACK PAIN
     Dosage: 60MG TWICE PER DAY
     Route: 048
     Dates: start: 20070317, end: 20070401
  3. XANAX [Suspect]
     Indication: INSOMNIA
     Route: 048
     Dates: start: 20070317

REACTIONS (6)
  - CIRCULATORY COLLAPSE [None]
  - GRAND MAL CONVULSION [None]
  - INSOMNIA [None]
  - MALAISE [None]
  - MOUTH HAEMORRHAGE [None]
  - WEIGHT DECREASED [None]
